FAERS Safety Report 15820151 (Version 1)
Quarter: 2019Q1

REPORT INFORMATION
  Report Type: Report from Study
  Country: US (occurrence: US)
  Receive Date: 20190114
  Receipt Date: 20190114
  Transmission Date: 20190417
  Serious: Yes (Hospitalization)
  Sender: FDA-Public Use
  Company Number: PHEH2019US001351

PATIENT
  Sex: Male

DRUGS (1)
  1. ENTRESTO [Suspect]
     Active Substance: SACUBITRIL\VALSARTAN
     Indication: PRODUCT USED FOR UNKNOWN INDICATION
     Dosage: 1 DF, BID (97 MG OF SACUBITRIL, 103 MG OF VALSARTAN)
     Route: 048
     Dates: start: 201802

REACTIONS (3)
  - Sluggishness [Unknown]
  - Hypertension [Unknown]
  - Fluid retention [Unknown]
